FAERS Safety Report 17864022 (Version 18)
Quarter: 2025Q3

REPORT INFORMATION
  Report Type: Report from Study
  Country: US (occurrence: US)
  Receive Date: 20200605
  Receipt Date: 20250806
  Transmission Date: 20251021
  Serious: Yes (Other)
  Sender: TAKEDA
  Company Number: US-SHIRE-US202018460

PATIENT
  Sex: Female
  Weight: 85 kg

DRUGS (27)
  1. HUMAN IMMUNOGLOBULIN G [Suspect]
     Active Substance: HUMAN IMMUNOGLOBULIN G
     Indication: Immunodeficiency common variable
     Dosage: 15 GRAM, 1/WEEK
  2. HUMAN IMMUNOGLOBULIN G [Suspect]
     Active Substance: HUMAN IMMUNOGLOBULIN G
     Indication: Bronchiectasis
     Dosage: 15 GRAM, 1/WEEK
     Dates: start: 20140212
  3. HUMAN IMMUNOGLOBULIN G [Suspect]
     Active Substance: HUMAN IMMUNOGLOBULIN G
     Dosage: 15 GRAM, 1/WEEK
     Dates: start: 20141021
  4. PREVACID [Suspect]
     Active Substance: LANSOPRAZOLE
     Indication: Product used for unknown indication
  5. CYMBALTA [Concomitant]
     Active Substance: DULOXETINE HYDROCHLORIDE
  6. DIAZEPAM [Concomitant]
     Active Substance: DIAZEPAM
  7. SYNTHROID [Concomitant]
     Active Substance: LEVOTHYROXINE SODIUM
     Indication: Product used for unknown indication
  8. BACLOFEN [Concomitant]
     Active Substance: BACLOFEN
  9. VITAMIN D [Concomitant]
     Active Substance: VITAMIN D NOS
  10. TRAMADOL HCL [Concomitant]
     Active Substance: TRAMADOL HYDROCHLORIDE
  11. TAMOXIFEN CITRATE [Concomitant]
     Active Substance: TAMOXIFEN CITRATE
  12. CRESTOR [Concomitant]
     Active Substance: ROSUVASTATIN CALCIUM
  13. ASPIRIN [Concomitant]
     Active Substance: ASPIRIN
  14. DEXTROSE [Concomitant]
     Active Substance: DEXTROSE MONOHYDRATE
  15. DIPHENHYDRAMINE HYDROCHLORIDE [Concomitant]
     Active Substance: DIPHENHYDRAMINE HYDROCHLORIDE
  16. LYRICA [Concomitant]
     Active Substance: PREGABALIN
  17. CELEBREX [Concomitant]
     Active Substance: CELECOXIB
  18. AUGMENTIN [Concomitant]
     Active Substance: AMOXICILLIN\CLAVULANATE POTASSIUM
  19. TRAMADOL [Concomitant]
     Active Substance: TRAMADOL
  20. VITAMIN D2 [Concomitant]
     Active Substance: ERGOCALCIFEROL
  21. SULFAMETHOXAZOLE [Concomitant]
     Active Substance: SULFAMETHOXAZOLE
  22. ZOSYN [Concomitant]
     Active Substance: PIPERACILLIN SODIUM\TAZOBACTAM SODIUM
  23. DIPHENHYDRAMINE [Concomitant]
     Active Substance: DIPHENHYDRAMINE
  24. EPINEPHRINE [Concomitant]
     Active Substance: EPINEPHRINE
  25. VITAMIN B [Concomitant]
     Active Substance: VITAMIN B
  26. CALCIUM CITRATE [Concomitant]
     Active Substance: CALCIUM CITRATE
  27. MINERALS\VITAMINS [Concomitant]
     Active Substance: MINERALS\VITAMINS

REACTIONS (12)
  - Breast cancer [Unknown]
  - Stiff person syndrome [Unknown]
  - Iron deficiency anaemia [Unknown]
  - Polyp [Unknown]
  - Syringe issue [Unknown]
  - Incorrect dose administered [Unknown]
  - Secretion discharge [Recovered/Resolved]
  - Upper respiratory tract infection [Unknown]
  - Sinusitis [Unknown]
  - Feeling abnormal [Unknown]
  - Pain [Unknown]
  - Fatigue [Unknown]
